FAERS Safety Report 11803494 (Version 1)
Quarter: 2015Q4

REPORT INFORMATION
  Report Type: Spontaneous
  Country: PL (occurrence: PL)
  Receive Date: 20151204
  Receipt Date: 20151204
  Transmission Date: 20160305
  Serious: Yes (Hospitalization)
  Sender: FDA-Public Use
  Company Number: PL-TEVA-613474ACC

PATIENT
  Sex: Female
  Weight: 51 kg

DRUGS (2)
  1. CARBAMAZEPINUM [Suspect]
     Active Substance: CARBAMAZEPINE
     Indication: DEPRESSION
     Route: 048
     Dates: start: 20150807, end: 20150902
  2. CHLORPROTIXEN [Suspect]
     Active Substance: CHLORPROTHIXENE HYDROCHLORIDE
     Indication: DEPRESSION
     Route: 048
     Dates: start: 20150807, end: 20150902

REACTIONS (3)
  - Tongue oedema [Recovering/Resolving]
  - Dysphagia [Recovering/Resolving]
  - Erythema [Recovering/Resolving]

NARRATIVE: CASE EVENT DATE: 20150830
